FAERS Safety Report 17896717 (Version 1)
Quarter: 2020Q2

REPORT INFORMATION
  Report Type: Spontaneous
  Country: IN (occurrence: IN)
  Receive Date: 20200615
  Receipt Date: 20200615
  Transmission Date: 20200714
  Serious: Yes (Congenital Anomaly)
  Sender: FDA-Public Use
  Company Number: IN-FERRINGPH-2020FE03491

PATIENT

DRUGS (5)
  1. HCG [Suspect]
     Active Substance: GONADOTROPHIN, CHORIONIC
     Indication: OVULATION INDUCTION
     Dosage: UNK
     Route: 064
     Dates: start: 201811
  2. MENOTROPHIN [Suspect]
     Active Substance: MENOTROPINS
     Indication: ASSISTED REPRODUCTIVE TECHNOLOGY
     Dosage: UNK
     Route: 064
     Dates: start: 201811
  3. FOLLICLE STIMULATING HORMONE, RECOMBINANT [Suspect]
     Active Substance: FOLLITROPIN
     Indication: OVULATION INDUCTION
     Dosage: UNK
     Route: 064
     Dates: start: 201811
  4. ZOLADEX GYN [Suspect]
     Active Substance: GOSERELIN ACETATE
     Indication: IN VITRO FERTILISATION
     Dosage: UNK
     Route: 064
     Dates: start: 20181105
  5. CONTRACEPTIVES [Suspect]
     Active Substance: UNSPECIFIED INGREDIENT
     Indication: PRODUCT USED FOR UNKNOWN INDICATION
     Dosage: UNK
     Route: 064
     Dates: start: 2018

REACTIONS (1)
  - Sirenomelia [Unknown]

NARRATIVE: CASE EVENT DATE: 2019
